FAERS Safety Report 9011608 (Version 1)
Quarter: 2013Q1

REPORT INFORMATION
  Report Type: Spontaneous
  Country: US (occurrence: US)
  Receive Date: 20130108
  Receipt Date: 20130108
  Transmission Date: 20140127
  Serious: Yes (Other)
  Sender: FDA-Public Use
  Company Number: US-009507513-1301USA001532

PATIENT
  Age: 32 Year
  Sex: Male

DRUGS (2)
  1. SINGULAIR [Suspect]
     Route: 048
  2. SERETIDE DISKUS [Suspect]
     Indication: ASTHMA
     Dosage: 1 PUFF, BID INHALATION
     Route: 055

REACTIONS (2)
  - Infertility male [Unknown]
  - Azoospermia [Unknown]
